FAERS Safety Report 23018007 (Version 2)
Quarter: 2023Q4

REPORT INFORMATION
  Report Type: Spontaneous
  Country: US (occurrence: US)
  Receive Date: 20231003
  Receipt Date: 20231017
  Transmission Date: 20240110
  Serious: Yes (Hospitalization)
  Sender: FDA-Public Use
  Company Number: US-SAGENT PHARMACEUTICALS-2023SAG000136

PATIENT
  Age: 72 Year
  Sex: Female

DRUGS (4)
  1. FLUOROURACIL [Suspect]
     Active Substance: FLUOROURACIL
     Indication: Gastric cancer recurrent
     Dosage: 3936 MG Q2WKS. ON 09-MAY-2023 AND 28-MAY-2023 MOST RECENT DOSE.
     Route: 042
     Dates: start: 20230328
  2. LEUCOVORIN CALCIUM [Suspect]
     Active Substance: LEUCOVORIN CALCIUM
     Indication: Gastric cancer
     Dosage: 656 MILLIGRAM Q2WEEKS
     Route: 042
     Dates: start: 20230411
  3. IRINOTECAN [Suspect]
     Active Substance: IRINOTECAN
     Indication: Gastric cancer
     Dosage: 295.2 MILLIGRAM EVERY 2 WEEK
     Route: 042
     Dates: start: 20230328
  4. IRINOTECAN [Suspect]
     Active Substance: IRINOTECAN
     Dosage: 223.5 MILLIGRAM EVERY 2 WEEK
     Route: 042
     Dates: start: 20230509

REACTIONS (1)
  - Pneumonia aspiration [Recovered/Resolved]

NARRATIVE: CASE EVENT DATE: 20230604
